FAERS Safety Report 7411831-8 (Version None)
Quarter: 2011Q2

REPORT INFORMATION
  Report Type: 
  Country: None (occurrence: None)
  Receive Date: 20110413
  Receipt Date: 20110408
  Transmission Date: 20111010
  Serious: Yes (Other)
  Sender: FDA-Public Use
  Company Number: US-GENZYME-CAMP-1001199

PATIENT
  Sex: Female
  Weight: 77.5 kg

DRUGS (5)
  1. VINCRISTINE SULFATE [Suspect]
     Indication: ACUTE LYMPHOCYTIC LEUKAEMIA
     Dosage: 2 MG, QD ON DAY 2 OF CYCLE 1
     Route: 040
     Dates: start: 20101127, end: 20101127
  2. CAMPATH [Suspect]
     Indication: ACUTE LYMPHOCYTIC LEUKAEMIA
     Dosage: 5 MG, QD ON DAY  1 AND 7 OF CYCLE 1
     Route: 058
     Dates: start: 20101126, end: 20101202
  3. METHOTREXATE [Suspect]
     Indication: ACUTE LYMPHOCYTIC LEUKAEMIA
     Dosage: 100 MG/M2, QD ON DAY 1 OF CYCLE 1
     Route: 042
     Dates: start: 20101126, end: 20101126
  4. DEXAMETHASONE [Suspect]
     Indication: ACUTE LYMPHOCYTIC LEUKAEMIA
     Dosage: 6 MG/M2, QD ON DAYS 1-10 OF CYCLE 1
     Route: 048
     Dates: start: 20101126, end: 20101205
  5. ELSPAR [Suspect]
     Indication: ACUTE LYMPHOCYTIC LEUKAEMIA
     Dosage: 500 IU/KG, QD ON DAY 2 OF CYCLE 1
     Route: 030
     Dates: start: 20101127, end: 20101127

REACTIONS (2)
  - ALANINE AMINOTRANSFERASE INCREASED [None]
  - ASPARTATE AMINOTRANSFERASE INCREASED [None]
